FAERS Safety Report 14028246 (Version 2)
Quarter: 2017Q4

REPORT INFORMATION
  Report Type: Report from Study
  Country: None (occurrence: US)
  Receive Date: 20170930
  Receipt Date: 20171006
  Transmission Date: 20180321
  Serious: Yes (Hospitalization, Other)
  Sender: FDA-Public Use
  Company Number: US-ABBVIE-17K-163-2002800-00

PATIENT
  Age: 70 Year
  Sex: Female

DRUGS (3)
  1. HUMIRA [Suspect]
     Active Substance: ADALIMUMAB
     Indication: CROHN^S DISEASE
     Route: 058
     Dates: end: 20170914
  2. HUMIRA [Suspect]
     Active Substance: ADALIMUMAB
     Indication: COLITIS ULCERATIVE
  3. CESTIN [Suspect]
     Active Substance: BETAMETHASONE VALERATE\GENTAMICIN SULFATE
     Indication: SINUSITIS
     Route: 065
     Dates: end: 2017

REACTIONS (11)
  - Middle ear effusion [Unknown]
  - Hypoacusis [Not Recovered/Not Resolved]
  - Immunodeficiency [Unknown]
  - Head injury [Unknown]
  - Pain in extremity [Unknown]
  - Fungal infection [Recovered/Resolved]
  - Loss of consciousness [Unknown]
  - Sinusitis [Not Recovered/Not Resolved]
  - Pulmonary oedema [Unknown]
  - Hypersensitivity [Not Recovered/Not Resolved]
  - Fungal infection [Unknown]

NARRATIVE: CASE EVENT DATE: 2016
